FAERS Safety Report 23792343 (Version 1)
Quarter: 2024Q2

REPORT INFORMATION
  Report Type: Report from Study
  Country: ES (occurrence: ES)
  Receive Date: 20240429
  Receipt Date: 20240429
  Transmission Date: 20240715
  Serious: Yes (Death, Hospitalization, Other)
  Sender: FDA-Public Use
  Company Number: ES-JNJFOC-20240440259

PATIENT
  Sex: Female
  Weight: 86 kg

DRUGS (17)
  1. MACITENTAN [Suspect]
     Active Substance: MACITENTAN
     Indication: Pulmonary arterial hypertension
     Route: 048
     Dates: start: 20181108
  2. SELEXIPAG [Suspect]
     Active Substance: SELEXIPAG
     Indication: Pulmonary arterial hypertension
     Route: 048
     Dates: start: 20230119
  3. SELEXIPAG [Suspect]
     Active Substance: SELEXIPAG
     Indication: Pulmonary arterial hypertension
  4. ADEMPAS [Concomitant]
     Active Substance: RIOCIGUAT
     Indication: Pulmonary arterial hypertension
     Route: 048
     Dates: start: 20200206
  5. ADEMPAS [Concomitant]
     Active Substance: RIOCIGUAT
     Route: 048
     Dates: start: 20200123, end: 20200206
  6. ADEMPAS [Concomitant]
     Active Substance: RIOCIGUAT
     Route: 048
     Dates: start: 20200109, end: 20200123
  7. ADEMPAS [Concomitant]
     Active Substance: RIOCIGUAT
     Route: 048
     Dates: start: 20191219, end: 20200109
  8. ADCIRCA [Concomitant]
     Active Substance: TADALAFIL
     Indication: Pulmonary arterial hypertension
     Route: 048
     Dates: start: 20160719, end: 20191219
  9. SOTALOL [Concomitant]
     Active Substance: SOTALOL
     Indication: Arrhythmia
     Route: 048
     Dates: start: 20220909
  10. ALENDRONIC ACID [Concomitant]
     Active Substance: ALENDRONIC ACID
     Indication: Vascular calcification
     Route: 048
     Dates: start: 20110215
  11. CALCIUM CARBONATE [Concomitant]
     Active Substance: CALCIUM CARBONATE
     Indication: Vascular calcification
     Route: 048
     Dates: start: 20101102
  12. FUROSEMIDE [Concomitant]
     Active Substance: FUROSEMIDE
     Indication: Fluid retention
     Route: 048
     Dates: start: 20220601
  13. OXYGEN [Concomitant]
     Active Substance: OXYGEN
     Indication: Antisynthetase syndrome
     Route: 055
     Dates: start: 20130521
  14. SINTROM [Concomitant]
     Active Substance: ACENOCOUMAROL
     Indication: Pulmonary arterial hypertension
     Route: 048
     Dates: start: 2015
  15. OMEPRAZOLE [Concomitant]
     Active Substance: OMEPRAZOLE
     Indication: Gastrointestinal disorder therapy
     Route: 048
     Dates: start: 2015
  16. PREDNISONE [Concomitant]
     Active Substance: PREDNISONE
     Indication: Conjunctival irritation
     Route: 048
     Dates: start: 20181120
  17. CYCLOSPORINE [Concomitant]
     Active Substance: CYCLOSPORINE
     Dates: start: 2010

REACTIONS (3)
  - Pulmonary hypertension [Fatal]
  - Anaemia [Unknown]
  - Respiratory failure [Unknown]

NARRATIVE: CASE EVENT DATE: 20240110
